FAERS Safety Report 20102451 (Version 2)
Quarter: 2021Q4

REPORT INFORMATION
  Report Type: Spontaneous
  Country: PL (occurrence: PL)
  Receive Date: 20211123
  Receipt Date: 20211217
  Transmission Date: 20220303
  Serious: Yes (Hospitalization)
  Sender: FDA-Public Use
  Company Number: PL-TEVA-2021-PL-1980548

PATIENT
  Age: 31 Year
  Sex: Male

DRUGS (9)
  1. AMLODIPINE\PERINDOPRIL [Suspect]
     Active Substance: AMLODIPINE\PERINDOPRIL
     Indication: Hypertension
     Dosage: 10 MG + 10 MG
     Route: 065
  2. ESCITALOPRAM [Interacting]
     Active Substance: ESCITALOPRAM OXALATE
     Indication: Depression
  3. OMEPRAZOLE [Interacting]
     Active Substance: OMEPRAZOLE
     Indication: Product used for unknown indication
     Dosage: 40 MILLIGRAM DAILY;
  4. CLARITHROMYCIN [Interacting]
     Active Substance: CLARITHROMYCIN
     Indication: Product used for unknown indication
     Dosage: 1000 MILLIGRAM DAILY;
  5. DEXTROMETHORPHAN [Interacting]
     Active Substance: DEXTROMETHORPHAN
     Indication: Antitussive therapy
     Dosage: 90 MILLIGRAM DAILY;
  6. METHYLPREDNISOLONE [Suspect]
     Active Substance: METHYLPREDNISOLONE
     Indication: Product used for unknown indication
     Dosage: 16 MILLIGRAM DAILY;
     Route: 065
  7. CODEINE [Suspect]
     Active Substance: CODEINE
     Indication: Product used for unknown indication
     Route: 065
  8. SULFOGAIACOL [Suspect]
     Active Substance: SULFOGAIACOL
     Indication: Product used for unknown indication
     Dosage: 3*1 TABLETT
     Route: 065
  9. AMOXICILLIN\CLAVULANIC ACID [Suspect]
     Active Substance: AMOXICILLIN\CLAVULANIC ACID
     Indication: Product used for unknown indication
     Dosage: 2000 MILLIGRAM DAILY;
     Route: 065

REACTIONS (6)
  - Cough [Recovered/Resolved]
  - Joint swelling [Unknown]
  - Hyperhidrosis [Unknown]
  - Poor quality sleep [Unknown]
  - Constipation [Unknown]
  - Drug interaction [Unknown]
